FAERS Safety Report 7088387-5 (Version None)
Quarter: 2010Q4

REPORT INFORMATION
  Report Type: 
  Country: None (occurrence: None)
  Receive Date: 20101108
  Receipt Date: 20101029
  Transmission Date: 20110411
  Serious: Yes (Other)
  Sender: FDA-Public Use
  Company Number: US-ROCHE-450969

PATIENT
  Sex: Female

DRUGS (3)
  1. PEGASYS [Suspect]
     Indication: HEPATITIS C
     Dosage: ROUTE REPORTED AS INJECTABLE.
     Route: 058
     Dates: start: 20040625, end: 20050524
  2. PEGASYS [Suspect]
     Dosage: ROUTE REPORTED AS INJECTABLE. MONOTHERAPY.
     Route: 058
     Dates: start: 20060110
  3. COPEGUS [Suspect]
     Indication: HEPATITIS C
     Dosage: THE PATIENT WAS NOT SURE, WHETHER SHE TOOK 800 MG OR 1000 MG DAILY.
     Route: 048
     Dates: start: 20040625, end: 20050524

REACTIONS (2)
  - HEPATITIS C RNA POSITIVE [None]
  - URETHRAL CYST [None]
